FAERS Safety Report 7745145-3 (Version None)
Quarter: 2011Q3

REPORT INFORMATION
  Report Type: 
  Country: None (occurrence: None)
  Receive Date: 20110913
  Receipt Date: 20110905
  Transmission Date: 20111222
  Serious: Yes (Other)
  Sender: FDA-Public Use
  Company Number: GB-AMGEN-GBRSP2011037818

PATIENT
  Age: 77 Year
  Sex: Male
  Weight: 63 kg

DRUGS (7)
  1. CALCICHEW-D3 [Concomitant]
     Dosage: 1 DF, 2X/DAY
     Dates: start: 20070701
  2. PANTOPRAZOLE [Concomitant]
     Dosage: 40 MG, 1X/DAY
  3. PREDNISOLONE [Concomitant]
     Dosage: 10 MG, 1X/DAY
     Dates: start: 20070701
  4. CITALOPRAM HYDROBROMIDE [Concomitant]
     Dosage: 10 MG, 1X/DAY
  5. ENBREL [Suspect]
     Indication: RHEUMATOID ARTHRITIS
     Dosage: 50 MG UNIT DOSE
     Route: 058
     Dates: start: 20060804, end: 20070716
  6. RITUXIMAB [Suspect]
     Indication: RHEUMATOID ARTHRITIS
     Dosage: 1000 MG UNIT DOSE
     Route: 042
     Dates: start: 20091126, end: 20100914
  7. ACETAMINOPHEN [Concomitant]
     Dosage: 500 MG UNIT DOSE

REACTIONS (8)
  - METASTASIS [None]
  - METASTASES TO LUNG [None]
  - METASTASES TO ABDOMINAL CAVITY [None]
  - SOFT TISSUE DISORDER [None]
  - MALIGNANT MELANOMA [None]
  - IMPAIRED SELF-CARE [None]
  - METASTASES TO CENTRAL NERVOUS SYSTEM [None]
  - INTERSTITIAL LUNG DISEASE [None]
